FAERS Safety Report 18998896 (Version 1)
Quarter: 2021Q1

REPORT INFORMATION
  Report Type: Spontaneous
  Country: IT (occurrence: IT)
  Receive Date: 20210312
  Receipt Date: 20210312
  Transmission Date: 20210420
  Serious: No
  Sender: FDA-Public Use
  Company Number: IT-DRREDDYS-USA/ITL/21/0131368

PATIENT

DRUGS (1)
  1. IMATINIB MESYLATE TABLETS [Suspect]
     Active Substance: IMATINIB MESYLATE
     Indication: CHRONIC MYELOID LEUKAEMIA

REACTIONS (3)
  - Drug intolerance [Unknown]
  - Vomiting [Unknown]
  - Nausea [Unknown]
